FAERS Safety Report 5444016-5 (Version None)
Quarter: 2007Q3

REPORT INFORMATION
  Report Type: 
  Country: None (occurrence: None)
  Receive Date: 20070831
  Receipt Date: 20070821
  Transmission Date: 20080115
  Serious: Yes (Other)
  Sender: FDA-Public Use
  Company Number: 2007US001526

PATIENT
  Sex: Female

DRUGS (1)
  1. PROGRAF [Suspect]
     Indication: KIDNEY TRANSPLANT REJECTION
     Dosage: 3 MB, BID
     Dates: start: 20050427, end: 20070608

REACTIONS (2)
  - KIDNEY TRANSPLANT REJECTION [None]
  - RENAL FAILURE [None]
